FAERS Safety Report 19409769 (Version 1)
Quarter: 2021Q2

REPORT INFORMATION
  Report Type: Spontaneous
  Country: US (occurrence: US)
  Receive Date: 20210614
  Receipt Date: 20210614
  Transmission Date: 20210717
  Serious: No
  Sender: FDA-Public Use
  Company Number: US-GALDERMA-US2021011520

PATIENT
  Age: 40 Year
  Sex: Female

DRUGS (6)
  1. PROACTIV MD ULTRA HYDRATING MOISTURIZER [Concomitant]
     Indication: ACNE
     Route: 061
     Dates: start: 20210501, end: 202105
  2. PROACTIV ACNE BODY WIPES [Concomitant]
     Active Substance: SALICYLIC ACID
     Indication: ACNE
     Route: 061
     Dates: start: 20210501, end: 202105
  3. PROACTIV MD ADAPALENE ACNE TREATMENT [Suspect]
     Active Substance: ADAPALENE
     Indication: ACNE
     Dosage: 0.1%
     Route: 061
     Dates: start: 20210501, end: 202105
  4. MULTIVITAMINS [Concomitant]
     Active Substance: VITAMINS
     Indication: PRODUCT USED FOR UNKNOWN INDICATION
  5. PROACTIV PORE PURIFYING NOSE STRIP [Concomitant]
     Indication: ACNE
     Route: 061
     Dates: start: 20210501, end: 202105
  6. PROACTIV MD ULTRA GENTLE CLEANSER [Concomitant]
     Indication: ACNE
     Route: 061
     Dates: start: 20210501, end: 202105

REACTIONS (4)
  - Dry skin [Recovering/Resolving]
  - Skin fissures [Recovering/Resolving]
  - Skin burning sensation [Recovering/Resolving]
  - Lip dry [Unknown]

NARRATIVE: CASE EVENT DATE: 202105
